FAERS Safety Report 7178177-7 (Version None)
Quarter: 2010Q4

REPORT INFORMATION
  Report Type: 
  Country: None (occurrence: None)
  Receive Date: 20101220
  Receipt Date: 20101122
  Transmission Date: 20110411
  Serious: Yes (Hospitalization)
  Sender: FDA-Public Use
  Company Number: IT-GILEAD-2010-0033164

PATIENT
  Sex: Male

DRUGS (10)
  1. RANEXA [Suspect]
     Indication: ANGINA PECTORIS
     Route: 048
     Dates: start: 20100501
  2. ACETYLSALICYLIC ACID [Concomitant]
     Route: 048
  3. VASERETIC [Concomitant]
     Route: 048
  4. ENALAPRIL [Concomitant]
     Indication: HYPERTENSION
  5. METFORAL [Concomitant]
     Indication: DIABETES MELLITUS
     Route: 048
  6. DILTIAZEM [Concomitant]
     Route: 048
  7. DILATREND [Concomitant]
     Route: 048
  8. MONOKET [Concomitant]
     Route: 048
  9. ESAPENT [Concomitant]
     Route: 048
  10. DIAMICRON [Concomitant]
     Route: 048

REACTIONS (2)
  - BRONCHOPNEUMONIA [None]
  - PULMONARY FIBROSIS [None]
